FAERS Safety Report 4691269-7 (Version None)
Quarter: 2005Q2

REPORT INFORMATION
  Report Type: 
  Country: None (occurrence: None)
  Receive Date: 20050610
  Receipt Date: 20050531
  Transmission Date: 20051028
  Serious: Yes (Hospitalization)
  Sender: FDA-Public Use
  Company Number: 2005081803

PATIENT
  Sex: Female

DRUGS (3)
  1. CELEBREX [Suspect]
     Indication: ARTHRITIS
     Dosage: 200 MG, ORAL
     Route: 048
  2. DYAZIDE [Concomitant]
  3. PREMPRO [Concomitant]

REACTIONS (7)
  - ARTHRITIS [None]
  - BLADDER REPAIR [None]
  - CONDITION AGGRAVATED [None]
  - DIFFICULTY IN WALKING [None]
  - HYSTERECTOMY [None]
  - IMPAIRED DRIVING ABILITY [None]
  - PAIN [None]
